FAERS Safety Report 8555320-6 (Version None)
Quarter: 2012Q3

REPORT INFORMATION
  Report Type: 
  Country: None (occurrence: None)
  Receive Date: 20120731
  Receipt Date: 20110729
  Transmission Date: 20120928
  Serious: Yes (Other)
  Sender: FDA-Public Use
  Company Number: US-ASTRAZENECA-2011SE42076

PATIENT
  Age: 47 Year
  Sex: Female

DRUGS (3)
  1. PAXIL [Concomitant]
     Indication: DEPRESSION
     Dosage: 40 MILLIGRAM
  2. KLONOPIN [Concomitant]
     Indication: ANXIETY
  3. SEROQUEL XR [Suspect]
     Indication: MAJOR DEPRESSION
     Route: 048
     Dates: start: 20101101

REACTIONS (3)
  - BLOOD GLUCOSE INCREASED [None]
  - BLOOD TRIGLYCERIDES INCREASED [None]
  - FATIGUE [None]
